FAERS Safety Report 15699554 (Version 1)
Quarter: 2018Q4

REPORT INFORMATION
  Report Type: Report from Study
  Country: None (occurrence: US)
  Receive Date: 20181207
  Receipt Date: 20181207
  Transmission Date: 20190205
  Serious: Yes (Death, Hospitalization)
  Sender: FDA-Public Use
  Company Number: US-ABBVIE-18S-163-2582505-00

PATIENT
  Age: 67 Year
  Sex: Male
  Weight: 60.38 kg

DRUGS (2)
  1. MULTIVITAMIN [Concomitant]
     Active Substance: VITAMINS
     Indication: PRODUCT USED FOR UNKNOWN INDICATION
  2. CREON [Suspect]
     Active Substance: PANCRELIPASE AMYLASE\PANCRELIPASE LIPASE\PANCRELIPASE PROTEASE
     Indication: PANCREATIC CARCINOMA
     Dosage: 2 CAPSULES WITH A MEAL ??1 CAPSULES WITH A SNACK
     Route: 048
     Dates: start: 201809

REACTIONS (7)
  - Ascites [Fatal]
  - Hypophagia [Not Recovered/Not Resolved]
  - Intestinal mass [Fatal]
  - Liver disorder [Fatal]
  - Nephropathy [Fatal]
  - Sepsis [Not Recovered/Not Resolved]
  - Biliary dilatation [Fatal]

NARRATIVE: CASE EVENT DATE: 201811
